FAERS Safety Report 15152180 (Version 1)
Quarter: 2018Q3

REPORT INFORMATION
  Report Type: Spontaneous
  Country: FR (occurrence: FR)
  Receive Date: 20180717
  Receipt Date: 20180717
  Transmission Date: 20181010
  Serious: Yes (Other)
  Sender: FDA-Public Use
  Company Number: FR-BEH-2018092717

PATIENT
  Age: 40 Year
  Sex: Female
  Weight: 51 kg

DRUGS (1)
  1. RHOPHYLAC [Suspect]
     Active Substance: HUMAN RHO(D) IMMUNE GLOBULIN
     Indication: ABORTION SPONTANEOUS
     Dosage: 1 DF, SINGLE
     Route: 042
     Dates: start: 20180604, end: 20180604

REACTIONS (2)
  - Pain in extremity [Not Recovered/Not Resolved]
  - Injection site reaction [Not Recovered/Not Resolved]

NARRATIVE: CASE EVENT DATE: 20180606
